FAERS Safety Report 10418984 (Version 1)
Quarter: 2014Q3

REPORT INFORMATION
  Report Type: Spontaneous
  Country: US (occurrence: None)
  Receive Date: 20140701
  Receipt Date: 20140701
  Transmission Date: 20150326
  Serious: No
  Sender: FDA-Public Use
  Company Number: 1000066489

PATIENT
  Age: 85 Year
  Sex: Female

DRUGS (4)
  1. LINZESS [Suspect]
     Active Substance: LINACLOTIDE
     Indication: CONSTIPATION
     Route: 048
     Dates: start: 201402, end: 2014
  2. ENEMA (NOS)(ENEMA (NOS))(ENEMA (NOS)) [Concomitant]
  3. STOOL SOFTENER (EOS)(STOOL SOFTENER (NOS))(STOOL SOFTENER (NOS)) [Concomitant]
  4. MIRALEX (POLYTHYKENE GLYCOL) [Concomitant]

REACTIONS (3)
  - Constipation [None]
  - Diarrhoea [None]
  - Drug ineffective [None]

NARRATIVE: CASE EVENT DATE: 2014
